FAERS Safety Report 5682804-0 (Version None)
Quarter: 2008Q1

REPORT INFORMATION
  Report Type: 
  Country: None (occurrence: None)
  Receive Date: 20080325
  Receipt Date: 20080318
  Transmission Date: 20080703
  Serious: Yes (Other)
  Sender: FDA-Public Use
  Company Number: 2008004517

PATIENT
  Sex: Female

DRUGS (1)
  1. VISINE-A [Suspect]
     Indication: EYE ALLERGY
     Dosage: 2 DROPS IN THE RIGHT EYE, OPHTHALMIC
     Route: 047
     Dates: start: 20080216, end: 20080216

REACTIONS (8)
  - BLISTER [None]
  - EYE INFECTION [None]
  - EYE IRRITATION [None]
  - EYE SWELLING [None]
  - EYELID IRRITATION [None]
  - HYPERSENSITIVITY [None]
  - INFECTION [None]
  - VISION BLURRED [None]
